FAERS Safety Report 19327531 (Version 1)
Quarter: 2021Q2

REPORT INFORMATION
  Report Type: Spontaneous
  Country: GB (occurrence: GB)
  Receive Date: 20210528
  Receipt Date: 20210528
  Transmission Date: 20210717
  Serious: Yes (Life-Threatening, Other)
  Sender: FDA-Public Use
  Company Number: GB-MYLANLABS-2021M1031363

PATIENT
  Age: 46 Year
  Sex: Male
  Weight: 94 kg

DRUGS (10)
  1. ATENOLOL. [Concomitant]
     Active Substance: ATENOLOL
     Indication: ILL-DEFINED DISORDER
     Dosage: UNK, AM (TAKE ONE EACH MORNING)
     Dates: start: 20201021
  2. TRAMADOL. [Concomitant]
     Active Substance: TRAMADOL
     Dosage: TAKE 1 OR 2 EVERY 4?6 HRS
     Dates: start: 20210401, end: 20210415
  3. ZOLPIDEM [Suspect]
     Active Substance: ZOLPIDEM TARTRATE
     Indication: PRODUCT USED FOR UNKNOWN INDICATION
     Dosage: 5 MILLIGRAM
     Dates: start: 20210524
  4. JEXT [Concomitant]
     Active Substance: EPINEPHRINE BITARTRATE
     Dosage: INJECT INTO THIGH THROUGH CLOTHES. COUNT TO 10 ...
     Dates: start: 20180925
  5. DIAZEPAM. [Concomitant]
     Active Substance: DIAZEPAM
     Dosage: XXXX ISSUED BY PSYCHIATRY XXXXXXXXXX
     Dates: start: 20210524
  6. CYCLIZINE [Concomitant]
     Active Substance: CYCLIZINE
     Dosage: 1 DOSAGE FORM, PRN (TAKE ONE THREE TIMES A DAY / WHEN REQUIRED FOR )
     Dates: start: 20210401, end: 20210416
  7. LANSOPRAZOLE. [Concomitant]
     Active Substance: LANSOPRAZOLE
     Dosage: 1 DOSAGE FORM, QD
     Dates: start: 20210125
  8. PRIADEL                            /00033702/ [Concomitant]
     Active Substance: LITHIUM CARBONATE
     Dosage: 3 DOSAGE FORM, QD (AT NIGHT)
     Dates: start: 20201021
  9. OLANZAPINE. [Concomitant]
     Active Substance: OLANZAPINE
     Dosage: 1 DOSAGE FORM, QD
     Dates: start: 20201021
  10. TRAZODONE [Concomitant]
     Active Substance: TRAZODONE HYDROCHLORIDE
     Dosage: 1 DOSAGE FORM, QD (EACH NIGHT)
     Dates: start: 20201021

REACTIONS (2)
  - Somnolence [Recovered/Resolved]
  - Coma scale abnormal [Unknown]

NARRATIVE: CASE EVENT DATE: 20210524
